FAERS Safety Report 25220331 (Version 3)
Quarter: 2025Q2

REPORT INFORMATION
  Report Type: Report from Study
  Country: US (occurrence: US)
  Receive Date: 20250421
  Receipt Date: 20250609
  Transmission Date: 20250716
  Serious: No
  Sender: IPSEN BIOPHARMACEUTICALS, INC.
  Company Number: US-IPSEN Group, Research and Development-2025-07831

PATIENT
  Age: 61 Year
  Sex: Female

DRUGS (10)
  1. IQIRVO [Suspect]
     Active Substance: ELAFIBRANOR
     Indication: Primary biliary cholangitis
     Route: 048
     Dates: start: 20240628
  2. CALCIUM [Concomitant]
     Active Substance: CALCIUM
  3. MAGNESIUM [Concomitant]
     Active Substance: MAGNESIUM
  4. VITAMIN D [Concomitant]
     Active Substance: VITAMIN D NOS
  5. MOUNJARO [Concomitant]
     Active Substance: TIRZEPATIDE
  6. FARXIGA [Concomitant]
     Active Substance: DAPAGLIFLOZIN PROPANEDIOL
  7. ROSUVASTATIN [Concomitant]
     Active Substance: ROSUVASTATIN
  8. PREDNISONE [Concomitant]
     Active Substance: PREDNISONE
  9. BUPROPION [Concomitant]
     Active Substance: BUPROPION
  10. CLOBETASOL PROP [Concomitant]

REACTIONS (1)
  - Dyspepsia [Recovering/Resolving]
